FAERS Safety Report 9299287 (Version 2)
Quarter: 2013Q2

REPORT INFORMATION
  Report Type: Report from Study
  Country: DE (occurrence: DE)
  Receive Date: 20130520
  Receipt Date: 20130523
  Transmission Date: 20140414
  Serious: Yes (Hospitalization)
  Sender: FDA-Public Use
  Company Number: DE-GILEAD-2013-0075280

PATIENT
  Age: 72 Year
  Sex: Male

DRUGS (10)
  1. RANOLAZINE [Suspect]
     Indication: CORONARY ARTERY DISEASE
     Dosage: 750 MG, BID
     Route: 048
     Dates: start: 20121027
  2. TOREM                              /01036501/ [Concomitant]
     Indication: CARDIAC FAILURE
     Dosage: 10 MG, QD
     Dates: start: 200808
  3. METOPROLOL [Concomitant]
     Dosage: 200 MG, UNK
     Dates: start: 200909
  4. LISINOPRIL [Concomitant]
     Dosage: 10 MG, QD
     Dates: start: 201009
  5. ISDN [Concomitant]
     Dosage: 60 MG, QD
     Dates: start: 201102
  6. NITRO-SPRAY [Concomitant]
     Dosage: UNK
     Dates: start: 200909
  7. MARCUMAR [Concomitant]
     Dosage: UNK
     Dates: start: 200810
  8. SPIRONOLACTON [Concomitant]
     Indication: CARDIAC FAILURE
     Dosage: 25 MG, QD
     Dates: start: 200808
  9. METFORMIN [Concomitant]
     Indication: DIABETES MELLITUS
     Dosage: 2000 MG, QD
     Dates: start: 200807
  10. INSULIN [Concomitant]
     Indication: DIABETES MELLITUS
     Dosage: UNK
     Dates: start: 201010

REACTIONS (1)
  - Neuropathic ulcer [Recovered/Resolved]
